FAERS Safety Report 5360280-5 (Version None)
Quarter: 2007Q2

REPORT INFORMATION
  Report Type: 
  Country: None (occurrence: None)
  Receive Date: 20070614
  Receipt Date: 20070603
  Transmission Date: 20071010
  Serious: Yes (Other)
  Sender: FDA-Public Use
  Company Number: US020213

PATIENT
  Age: 57 Year
  Sex: Female

DRUGS (1)
  1. PROVIGIL [Suspect]
     Indication: ASTHENIA
     Dosage: 200 MG QAM ORAL
     Route: 048

REACTIONS (2)
  - EXTRAPYRAMIDAL DISORDER [None]
  - TREMOR [None]
